FAERS Safety Report 7843807-0 (Version None)
Quarter: 2011Q4

REPORT INFORMATION
  Report Type: 
  Country: None (occurrence: None)
  Receive Date: 20111025
  Receipt Date: 20111012
  Transmission Date: 20120403
  Serious: Yes (Hospitalization)
  Sender: FDA-Public Use
  Company Number: US-BAYER-2011-052081

PATIENT
  Age: 34 Year
  Sex: Female

DRUGS (4)
  1. LIDOCAINE HYDROCHLORIDE [Concomitant]
     Indication: DYSPHAGIA
     Dosage: 20 MG/ML, QID
     Route: 048
     Dates: start: 20090819
  2. TAMIFLU [Concomitant]
     Indication: VIRAL INFECTION
     Dosage: 75 MG, BID
     Route: 048
     Dates: start: 20090818
  3. AUGMENTIN [Concomitant]
     Indication: PHARYNGITIS
     Dosage: UNK UNK, BID
     Route: 048
     Dates: start: 20090819
  4. YAZ [Suspect]
     Dosage: UNK
     Dates: start: 20090101

REACTIONS (4)
  - BILE DUCT STONE [None]
  - CHOLECYSTECTOMY [None]
  - PAIN [None]
  - CHOLECYSTITIS CHRONIC [None]
